FAERS Safety Report 9411286 (Version 1)
Quarter: 2013Q3

REPORT INFORMATION
  Report Type: Spontaneous
  Country: US (occurrence: US)
  Receive Date: 20130722
  Receipt Date: 20130722
  Transmission Date: 20140515
  Serious: No
  Sender: FDA-Public Use
  Company Number: US-BIOGENIDEC-2013BI031000

PATIENT
  Age: 38 Year
  Sex: Female

DRUGS (3)
  1. AVONEX [Suspect]
     Indication: MULTIPLE SCLEROSIS
     Route: 030
     Dates: start: 20130228
  2. AVONEX [Suspect]
     Indication: MULTIPLE SCLEROSIS
     Route: 030
     Dates: start: 20130713
  3. MOTRIN [Concomitant]

REACTIONS (12)
  - Sensitivity of teeth [Not Recovered/Not Resolved]
  - Hepatic enzyme [Unknown]
  - Blindness [Unknown]
  - Fatigue [Not Recovered/Not Resolved]
  - Nausea [Not Recovered/Not Resolved]
  - Dizziness [Not Recovered/Not Resolved]
  - Influenza like illness [Recovered/Resolved]
  - Pain [Recovered/Resolved with Sequelae]
  - Asthenia [Unknown]
  - Depressed mood [Unknown]
  - Anxiety [Not Recovered/Not Resolved]
  - Injection site pain [Recovered/Resolved]
